FAERS Safety Report 7136974-8 (Version None)
Quarter: 2010Q4

REPORT INFORMATION
  Report Type: 
  Country: None (occurrence: None)
  Receive Date: 20101119
  Receipt Date: 20101025
  Transmission Date: 20110411
  Serious: Yes (Other)
  Sender: FDA-Public Use
  Company Number: 2010SP060092

PATIENT
  Age: 25 Year
  Sex: Female

DRUGS (2)
  1. CHORIONIC GONADOTROPIN [Suspect]
     Indication: OVARIAN HYPERSTIMULATION SYNDROME
  2. FOLLITROPHIN BETA (FOLLITROPHIN BETA /01348901/) [Suspect]
     Indication: OVARIAN HYPERSTIMULATION SYNDROME

REACTIONS (1)
  - SUPERIOR SAGITTAL SINUS THROMBOSIS [None]
